FAERS Safety Report 18536643 (Version 1)
Quarter: 2020Q4

REPORT INFORMATION
  Report Type: Spontaneous
  Country: US (occurrence: US)
  Receive Date: 20201124
  Receipt Date: 20201124
  Transmission Date: 20210114
  Serious: No
  Sender: FDA-Public Use
  Company Number: US-P+L DEVELOPMENTS OF NEWYORK CORPORATION-2096213

PATIENT
  Sex: Female

DRUGS (1)
  1. MICONAZOLE NITRATE. [Suspect]
     Active Substance: MICONAZOLE NITRATE
     Indication: VULVOVAGINAL MYCOTIC INFECTION
     Route: 067

REACTIONS (3)
  - Product leakage [Unknown]
  - Product packaging difficult to open [Unknown]
  - Drug ineffective [Unknown]
